FAERS Safety Report 11724923 (Version 1)
Quarter: 2015Q4

REPORT INFORMATION
  Report Type: Spontaneous
  Country: US (occurrence: US)
  Receive Date: 20151111
  Receipt Date: 20151111
  Transmission Date: 20160304
  Serious: No
  Sender: FDA-Public Use
  Company Number: US-UCBSA-2015010520

PATIENT
  Sex: Female

DRUGS (3)
  1. VIMPAT [Suspect]
     Active Substance: LACOSAMIDE
     Indication: SEIZURE
  2. VIMPAT [Suspect]
     Active Substance: LACOSAMIDE
     Indication: PRODUCT USE ISSUE
  3. VIMPAT [Suspect]
     Active Substance: LACOSAMIDE
     Indication: NEURALGIA
     Dosage: 50 MG 2 TABLETS DAILY

REACTIONS (2)
  - Therapeutic response unexpected [Unknown]
  - Off label use [Unknown]
